FAERS Safety Report 7849980-2 (Version None)
Quarter: 2011Q4

REPORT INFORMATION
  Report Type: 
  Country: None (occurrence: None)
  Receive Date: 20111025
  Receipt Date: 20111025
  Transmission Date: 20120403
  Serious: Yes (Life-Threatening, Hospitalization)
  Sender: FDA-Public Use
  Company Number: None

PATIENT
  Age: 87 Year
  Sex: Female
  Weight: 79.1 kg

DRUGS (3)
  1. ASPIRIN [Suspect]
     Indication: DIABETES MELLITUS
     Dosage: 81 MG EVERY DAY PO
     Route: 048
     Dates: start: 20100101, end: 20110731
  2. ASPIRIN [Suspect]
     Indication: PROPHYLAXIS
     Dosage: 81 MG EVERY DAY PO
     Route: 048
     Dates: start: 20100101, end: 20110731
  3. ASPIRIN [Suspect]
     Indication: CARDIOMYOPATHY
     Dosage: 81 MG EVERY DAY PO
     Route: 048
     Dates: start: 20100101, end: 20110731

REACTIONS (4)
  - RECTAL HAEMORRHAGE [None]
  - ABDOMINAL DISCOMFORT [None]
  - DEFAECATION URGENCY [None]
  - ABDOMINAL PAIN LOWER [None]
